FAERS Safety Report 9675488 (Version 2)
Quarter: 2013Q4

REPORT INFORMATION
  Report Type: Spontaneous
  Country: US (occurrence: US)
  Receive Date: 20131107
  Receipt Date: 20131107
  Transmission Date: 20140711
  Serious: Yes (Hospitalization)
  Sender: FDA-Public Use
  Company Number: US-GILEAD-2013-0086608

PATIENT
  Sex: Female

DRUGS (3)
  1. LETAIRIS [Suspect]
     Indication: PRODUCT USED FOR UNKNOWN INDICATION
     Dosage: 10 MG, QD
     Route: 048
     Dates: start: 20090210
  2. VELETRI [Concomitant]
  3. ADCIRCA [Concomitant]

REACTIONS (8)
  - Skin ulcer [Unknown]
  - Oedema peripheral [Unknown]
  - Hypotension [Unknown]
  - Dry mouth [Unknown]
  - Diarrhoea [Unknown]
  - Dermatitis contact [Recovered/Resolved]
  - Fluid retention [Unknown]
  - Dizziness [Unknown]
